FAERS Safety Report 9003277 (Version 2)
Quarter: 2013Q1

REPORT INFORMATION
  Report Type: Report from Study
  Country: US (occurrence: US)
  Receive Date: 20130108
  Receipt Date: 20130114
  Transmission Date: 20140127
  Serious: Yes (Death)
  Sender: FDA-Public Use
  Company Number: US-BAXTER-2013BAX000141

PATIENT
  Age: 49 None
  Sex: Female
  Weight: 58 kg

DRUGS (12)
  1. ARALAST NP [Suspect]
     Indication: ALPHA-1 ANTI-TRYPSIN DEFICIENCY
     Route: 042
  2. SPIRIVA [Concomitant]
     Indication: PRODUCT USED FOR UNKNOWN INDICATION
     Dates: end: 20120102
  3. ADVAIR [Concomitant]
     Indication: PRODUCT USED FOR UNKNOWN INDICATION
     Dates: end: 20120102
  4. ALBUTEROL [Concomitant]
     Indication: PRODUCT USED FOR UNKNOWN INDICATION
     Dates: end: 20120102
  5. TYLENOL [Concomitant]
     Indication: PREMEDICATION
     Route: 048
     Dates: end: 20120102
  6. IBUPROFEN [Concomitant]
     Indication: PREMEDICATION
     Route: 048
     Dates: end: 20120102
  7. MELATONIN [Concomitant]
     Indication: SLEEP DISORDER
     Route: 048
     Dates: end: 20120102
  8. PRILOSEC [Concomitant]
     Indication: PRODUCT USED FOR UNKNOWN INDICATION
     Route: 048
     Dates: end: 20120102
  9. MUCOMYST [Concomitant]
     Indication: PRODUCT USED FOR UNKNOWN INDICATION
     Dates: end: 20120102
  10. DEXAMETHASONE [Concomitant]
     Indication: MALAISE
     Route: 048
     Dates: end: 20120102
  11. KEPPRA [Concomitant]
     Indication: PRODUCT USED FOR UNKNOWN INDICATION
     Route: 048
     Dates: end: 20120102
  12. NUVARING [Concomitant]
     Indication: PRODUCT USED FOR UNKNOWN INDICATION
     Route: 067
     Dates: end: 20120102

REACTIONS (2)
  - Pneumonia [Fatal]
  - Brain abscess [Unknown]
